FAERS Safety Report 24006648 (Version 1)
Quarter: 2024Q2

REPORT INFORMATION
  Report Type: Spontaneous
  Country: ES (occurrence: ES)
  Receive Date: 20240624
  Receipt Date: 20240624
  Transmission Date: 20240716
  Serious: Yes (Hospitalization)
  Sender: FDA-Public Use
  Company Number: ES-JNJFOC-20240611724

PATIENT
  Age: 48 Year
  Sex: Female

DRUGS (5)
  1. TENOFOVIR DISOPROXIL [Interacting]
     Active Substance: TENOFOVIR DISOPROXIL
     Indication: HIV infection
     Dosage: UNK
     Route: 065
  2. TRIAMCINOLONE [Interacting]
     Active Substance: TRIAMCINOLONE
     Indication: Ligament rupture
     Dosage: 2 DOSAGE FORM (2 INJECTIONS)
     Route: 065
  3. COBICISTAT\DARUNAVIR ETHANOLATE [Interacting]
     Active Substance: COBICISTAT\DARUNAVIR ETHANOLATE
     Indication: HIV infection
     Dosage: UNK
     Route: 048
  4. PREDNISONE [Interacting]
     Active Substance: PREDNISONE
     Indication: Ligament rupture
     Dosage: FOR 2 WEEKS IN AUGUST
     Route: 065
  5. EMTRICITABINE [Interacting]
     Active Substance: EMTRICITABINE
     Indication: HIV infection
     Dosage: UNK
     Route: 065

REACTIONS (2)
  - Secondary adrenocortical insufficiency [Recovering/Resolving]
  - Drug interaction [Recovering/Resolving]
